FAERS Safety Report 5559257-6 (Version None)
Quarter: 2007Q4

REPORT INFORMATION
  Report Type: 
  Country: None (occurrence: None)
  Receive Date: 20071214
  Receipt Date: 20070924
  Transmission Date: 20080405
  Serious: No
  Sender: FDA-Public Use
  Company Number: US-ABBOTT-07P-163-0418919-00

PATIENT
  Sex: Female
  Weight: 95.45 kg

DRUGS (3)
  1. HUMIRA [Suspect]
     Indication: RHEUMATOID ARTHRITIS
     Route: 058
     Dates: start: 20050101, end: 20070401
  2. HUMIRA [Suspect]
     Dosage: 1/2 SYRINGE
     Route: 058
     Dates: start: 20070501, end: 20070501
  3. HUMIRA [Suspect]
     Dosage: O2 SAT DROPPED AGAIN
     Route: 058
     Dates: start: 20070501

REACTIONS (1)
  - OXYGEN SATURATION DECREASED [None]
